FAERS Safety Report 5766208-8 (Version None)
Quarter: 2008Q2

REPORT INFORMATION
  Report Type: 
  Country: None (occurrence: None)
  Receive Date: 20080606
  Receipt Date: 20080522
  Transmission Date: 20081010
  Serious: Yes (Other)
  Sender: FDA-Public Use
  Company Number: 2008AL005710

PATIENT
  Age: 57 Year
  Sex: Male
  Weight: 117.9352 kg

DRUGS (8)
  1. DIGOXIN [Suspect]
     Indication: CARDIAC FAILURE CONGESTIVE
     Dosage: .25MG DAILY PO
     Route: 048
     Dates: start: 20050801
  2. LASIX [Concomitant]
  3. SPIRONOLACTONE [Concomitant]
  4. METOPROLOL [Concomitant]
  5. BURPRION [Concomitant]
  6. METFORMIN [Concomitant]
  7. LIPITOR [Concomitant]
  8. ASPIRIN [Concomitant]

REACTIONS (2)
  - DIZZINESS [None]
  - FALL [None]
